FAERS Safety Report 5469659-4 (Version None)
Quarter: 2007Q3

REPORT INFORMATION
  Report Type: 
  Country: None (occurrence: None)
  Receive Date: 20070927
  Receipt Date: 20070919
  Transmission Date: 20080115
  Serious: Yes (Hospitalization)
  Sender: FDA-Public Use
  Company Number: GB-ROCHE-510370

PATIENT
  Age: 67 Year
  Sex: Female
  Weight: 100.7 kg

DRUGS (6)
  1. XENICAL [Suspect]
     Indication: OBESITY
     Route: 048
     Dates: start: 20070417
  2. UNSPECIFIED DRUG [Concomitant]
     Indication: ANGINA PECTORIS
     Route: 048
  3. UNSPECIFIED DRUG [Concomitant]
     Indication: HYPERTENSION
     Route: 048
  4. UNSPECIFIED DRUG [Concomitant]
     Indication: DEPRESSION
     Route: 048
  5. UNSPECIFIED DRUG [Concomitant]
  6. UNSPECIFIED DRUG [Concomitant]
     Indication: ASTHMA
     Route: 048

REACTIONS (1)
  - ACUTE CORONARY SYNDROME [None]
